FAERS Safety Report 8863373 (Version 1)
Quarter: 2012Q4

REPORT INFORMATION
  Report Type: 
  Country: DE (occurrence: DE)
  Receive Date: 20121025
  Receipt Date: 20121025
  Transmission Date: 20130627
  Serious: Yes (Other)
  Sender: FDA-Public Use
  Company Number: DE-GLAXOSMITHKLINE-D0070554A

PATIENT
  Age: 55 Year
  Sex: Male

DRUGS (11)
  1. REQUIP-MODUTAB [Suspect]
     Indication: PARKINSON^S DISEASE
     Route: 048
  2. MADOPAR [Suspect]
     Indication: PARKINSON^S DISEASE
     Dosage: 125MG Unknown
     Route: 065
  3. LEVODOPA [Suspect]
     Route: 065
  4. ENTACAPONE [Suspect]
     Dosage: 200MG per day
     Route: 065
  5. BISOPROLOL [Suspect]
     Dosage: 10MG Unknown
     Route: 065
  6. AMLODIPIN [Suspect]
     Dosage: 10MG Unknown
     Route: 065
  7. CARBIDOPA + LEVODOPA [Suspect]
     Dosage: 250MG per day
     Route: 065
     Dates: start: 201210
  8. MIRTAZAPIN [Suspect]
     Dosage: 45MG per day
     Route: 065
  9. DOXEPIN [Concomitant]
     Dosage: 100MG Unknown
     Route: 065
  10. IBUPROFEN [Concomitant]
     Dosage: 600MG As required
     Route: 065
  11. SIFROL [Concomitant]
     Route: 065

REACTIONS (13)
  - Parkinson^s disease [Unknown]
  - Myalgia [Unknown]
  - Fatigue [Unknown]
  - Asthenia [Unknown]
  - Lethargy [Unknown]
  - Tinnitus [Unknown]
  - Weight fluctuation [Unknown]
  - Sleep disorder [Unknown]
  - Gait disturbance [Unknown]
  - Oedema peripheral [Unknown]
  - General physical health deterioration [Unknown]
  - Hyperhidrosis [Unknown]
  - Musculoskeletal stiffness [Unknown]
